FAERS Safety Report 6202618-2 (Version None)
Quarter: 2009Q2

REPORT INFORMATION
  Report Type: 
  Country: None (occurrence: None)
  Receive Date: 20090520
  Receipt Date: 20090507
  Transmission Date: 20091009
  Serious: Yes (Hospitalization)
  Sender: FDA-Public Use
  Company Number: URSO-2009-046 FUP#1

PATIENT
  Age: 45 Year
  Sex: Female

DRUGS (3)
  1. URSO 250 [Suspect]
     Dosage: ORAL
     Route: 048
     Dates: start: 20090406
  2. PREDNISOLONE [Suspect]
     Dosage: ORAL
     Route: 048
     Dates: start: 20090408
  3. OMEPRAZOLE [Suspect]
     Dosage: ORAL
     Route: 048
     Dates: start: 20090406

REACTIONS (3)
  - ALANINE AMINOTRANSFERASE DECREASED [None]
  - ASPARTATE AMINOTRANSFERASE DECREASED [None]
  - AUTOIMMUNE HEPATITIS [None]
